FAERS Safety Report 15628557 (Version 1)
Quarter: 2018Q4

REPORT INFORMATION
  Report Type: Spontaneous
  Country: None (occurrence: PT)
  Receive Date: 20181116
  Receipt Date: 20181116
  Transmission Date: 20190205
  Serious: Yes (Other)
  Sender: FDA-Public Use
  Company Number: PT-LABORATOIRE HRA PHARMA-2058971

PATIENT
  Age: 32 Year
  Sex: Female

DRUGS (4)
  1. KETOCONAZOLE. [Suspect]
     Active Substance: KETOCONAZOLE
  2. INSULIN [Concomitant]
     Active Substance: INSULIN NOS
  3. METFORMIN [Concomitant]
     Active Substance: METFORMIN HYDROCHLORIDE
  4. METOPIRONE [Suspect]
     Active Substance: METYRAPONE
     Indication: CORTISOL INCREASED

REACTIONS (6)
  - Gestational diabetes [Unknown]
  - Cellulitis [Unknown]
  - Cortisol increased [Unknown]
  - Exposure during pregnancy [Unknown]
  - Premature delivery [Unknown]
  - Premature rupture of membranes [Unknown]
